FAERS Safety Report 18454010 (Version 1)
Quarter: 2020Q4

REPORT INFORMATION
  Report Type: Spontaneous
  Country: LB (occurrence: LB)
  Receive Date: 20201102
  Receipt Date: 20201102
  Transmission Date: 20210114
  Serious: Yes (Death)
  Sender: FDA-Public Use
  Company Number: LB-ASTRAZENECA-2020SF41433

PATIENT
  Age: 79 Year
  Sex: Female

DRUGS (1)
  1. TAGRISSO [Suspect]
     Active Substance: OSIMERTINIB
     Indication: EPIDERMAL NECROSIS
     Dosage: 80.0MG UNKNOWN
     Route: 048
     Dates: start: 20200101, end: 20200331

REACTIONS (1)
  - Malignant neoplasm progression [Fatal]
